FAERS Safety Report 5005800-5 (Version None)
Quarter: 2006Q2

REPORT INFORMATION
  Report Type: 
  Country: None (occurrence: None)
  Receive Date: 20060517
  Receipt Date: 20060517
  Transmission Date: 20061013
  Serious: Yes (Disabling)
  Sender: FDA-Public Use
  Company Number: None

PATIENT
  Age: 82 Year
  Sex: Male
  Weight: 86.637 kg

DRUGS (5)
  1. ACTONEL [Suspect]
     Indication: OSTEOPOROSIS
     Dosage: 35MG, WEEKLY, ORAL
     Route: 048
     Dates: start: 20050713, end: 20050810
  2. ENALAPRIL [Concomitant]
  3. PRILOSEC [Concomitant]
  4. LIPITOR [Concomitant]
  5. ASPIRIN [Concomitant]

REACTIONS (3)
  - MUSCULOSKELETAL DISCOMFORT [None]
  - PAIN [None]
  - RESTLESS LEGS SYNDROME [None]
